FAERS Safety Report 6306917-5 (Version None)
Quarter: 2009Q3

REPORT INFORMATION
  Report Type: 
  Country: None (occurrence: None)
  Receive Date: 20090812
  Receipt Date: 20090803
  Transmission Date: 20100115
  Serious: No
  Sender: FDA-Public Use
  Company Number: US-B.I. PHARMACEUTICALS,INC./RIDGEFIELD-2009-BP-09134BP

PATIENT
  Sex: Male

DRUGS (6)
  1. ZANTAC 75 [Suspect]
     Indication: CHEST PAIN
     Dosage: 75 MG
     Route: 048
     Dates: start: 20090803
  2. WELLBUTRIN [Concomitant]
     Indication: DEPRESSION
     Dosage: 300 MG
     Route: 048
  3. EFFEXOR [Concomitant]
     Indication: DEPRESSION
     Dosage: 375 MG
     Route: 048
  4. KLONEPIN [Concomitant]
     Indication: ANXIETY
     Dosage: 3 MG
     Route: 048
  5. TRAZODONE HCL [Concomitant]
     Indication: ANXIETY
     Dosage: 100 MG
     Route: 048
  6. AMBIEN [Concomitant]
     Indication: SLEEP DISORDER THERAPY
     Dosage: 10 MG
     Route: 048

REACTIONS (2)
  - CHEST PAIN [None]
  - NAUSEA [None]
